FAERS Safety Report 10134260 (Version 2)
Quarter: 2014Q2

REPORT INFORMATION
  Report Type: Spontaneous
  Country: JP (occurrence: JP)
  Receive Date: 20140428
  Receipt Date: 20140428
  Transmission Date: 20141212
  Serious: Yes (Death)
  Sender: FDA-Public Use
  Company Number: JP-TAKEDA-2014TJP003094

PATIENT
  Age: 68 Year
  Sex: Female
  Weight: 54 kg

DRUGS (9)
  1. NESINA TABLETS 12.5MG [Suspect]
     Indication: DIABETES MELLITUS
     Dosage: 12.5 MG, QD
     Route: 048
     Dates: start: 20131216, end: 20140317
  2. BENET [Concomitant]
     Indication: OSTEOPOROSIS
     Dosage: 17.5 MG, 1/WEEK
     Route: 048
     Dates: start: 20131205, end: 20140313
  3. MAGMITT [Concomitant]
     Indication: CONSTIPATION
     Dosage: 1000 MG, TID
     Route: 048
     Dates: start: 20131205, end: 20140317
  4. MELOXICAM [Concomitant]
     Indication: CANCER PAIN
     Dosage: 10 MG, QD
     Route: 048
     Dates: start: 20131205, end: 20140317
  5. LANSOPRAZOLE OD [Concomitant]
     Indication: GASTROOESOPHAGEAL REFLUX DISEASE
     Dosage: 15 MG, QD
     Route: 048
     Dates: start: 20131205, end: 20140317
  6. SENNOSIDE                          /00571902/ [Concomitant]
     Indication: CONSTIPATION
     Dosage: 12 MG, QD
     Route: 048
     Dates: start: 20131205, end: 20140317
  7. BROTIZOLAM [Concomitant]
     Indication: INSOMNIA
     Dosage: 0.25 MG, QD
     Route: 048
     Dates: start: 20131205, end: 20140317
  8. FENTOS TAPE [Concomitant]
     Indication: CANCER PAIN
     Dosage: 7 MG, QD
     Route: 062
     Dates: start: 20131205, end: 20140317
  9. OPSO [Concomitant]
     Indication: CANCER PAIN
     Dosage: 20 MG, PRN
     Route: 048
     Dates: start: 20131205, end: 20140317

REACTIONS (3)
  - Death [Fatal]
  - Hepatic steatosis [Recovering/Resolving]
  - Hepatic function abnormal [Recovered/Resolved]
